FAERS Safety Report 26205795 (Version 2)
Quarter: 2025Q4

REPORT INFORMATION
  Report Type: Spontaneous
  Country: US (occurrence: US)
  Receive Date: 20251229
  Receipt Date: 20251229
  Transmission Date: 20260117
  Serious: Yes (Other)
  Sender: ROCHE
  Company Number: US-ROCHE-10000469934

PATIENT
  Sex: Female

DRUGS (29)
  1. XOLAIR PFS [Suspect]
     Active Substance: OMALIZUMAB
     Indication: Colitis ulcerative
     Route: 058
  2. XOLAIR PFS [Suspect]
     Active Substance: OMALIZUMAB
  3. NUCYNTA [Concomitant]
     Active Substance: TAPENTADOL HYDROCHLORIDE
  4. DICLOFENAC [Concomitant]
     Active Substance: DICLOFENAC
  5. TYLENOL [Concomitant]
     Active Substance: ACETAMINOPHEN
  6. CYCLOBENZAPRINE [Concomitant]
     Active Substance: CYCLOBENZAPRINE
  7. TRIAMCINOLONE [Concomitant]
     Active Substance: TRIAMCINOLONE
  8. AMLODIPINE [Concomitant]
     Active Substance: AMLODIPINE BESYLATE
  9. LOSARTAN POTASSIUM [Concomitant]
     Active Substance: LOSARTAN POTASSIUM
  10. METOPROLOL [Concomitant]
     Active Substance: METOPROLOL
  11. SPIRONOLACTONE [Concomitant]
     Active Substance: SPIRONOLACTONE
  12. HYDROCHLOROTHIAZIDE [Concomitant]
     Active Substance: HYDROCHLOROTHIAZIDE
  13. GLIPIZIDE [Concomitant]
     Active Substance: GLIPIZIDE
  14. METFORMIN [Concomitant]
     Active Substance: METFORMIN HYDROCHLORIDE
  15. FENOFIBRATE [Concomitant]
     Active Substance: FENOFIBRATE
  16. ROSUVASTATIN [Concomitant]
     Active Substance: ROSUVASTATIN
  17. SUCRALFATE [Concomitant]
     Active Substance: SUCRALFATE
  18. PEPCID [Concomitant]
     Active Substance: FAMOTIDINE
  19. ONDANSETRON [Concomitant]
     Active Substance: ONDANSETRON
  20. LEVSIN [Concomitant]
     Active Substance: HYOSCYAMINE SULFATE
  21. HYOSCYAMINE [Concomitant]
     Active Substance: HYOSCYAMINE
  22. LEVOTHYROXINE [Concomitant]
     Active Substance: LEVOTHYROXINE
  23. DULOXETINE [Concomitant]
     Active Substance: DULOXETINE
  24. CETIRIZINE [Concomitant]
     Active Substance: CETIRIZINE HYDROCHLORIDE
  25. FISH OIL [Concomitant]
     Active Substance: FISH OIL
  26. MAGNESIUM [Concomitant]
     Active Substance: MAGNESIUM
  27. VITAMIN B12 [Concomitant]
     Active Substance: CYANOCOBALAMIN
  28. VITAMIN D3 [Concomitant]
     Active Substance: CHOLECALCIFEROL
  29. PROBIOTICS NOS [Concomitant]
     Active Substance: PROBIOTICS NOS

REACTIONS (2)
  - Neoplasm malignant [Unknown]
  - Off label use [Unknown]
